FAERS Safety Report 6959455-0 (Version None)
Quarter: 2010Q3

REPORT INFORMATION
  Report Type: 
  Country: None (occurrence: None)
  Receive Date: 20100831
  Receipt Date: 20100824
  Transmission Date: 20110219
  Serious: Yes (Death)
  Sender: FDA-Public Use
  Company Number: US-AMGEN-QUU433850

PATIENT
  Sex: Male
  Weight: 71.3 kg

DRUGS (3)
  1. NPLATE [Suspect]
     Indication: CHRONIC LYMPHOCYTIC LEUKAEMIA
     Dates: start: 20081017, end: 20091230
  2. IMMU-G [Concomitant]
     Dates: start: 20080613
  3. CORTICOSTEROIDS [Concomitant]
     Dates: start: 20080811

REACTIONS (1)
  - PROSTATE CANCER [None]
